FAERS Safety Report 8400185-6 (Version None)
Quarter: 2012Q2

REPORT INFORMATION
  Report Type: 
  Country: None (occurrence: None)
  Receive Date: 20120525
  Receipt Date: 20120515
  Transmission Date: 20120825
  Serious: Yes (Hospitalization, Disabling)
  Sender: FDA-Public Use
  Company Number: 2012P1027022

PATIENT
  Age: 35 Year
  Sex: Female
  Weight: 52.1637 kg

DRUGS (9)
  1. BACLOFEN [Concomitant]
  2. PHENERGAN [Concomitant]
  3. FENTANYL-50 [Suspect]
     Indication: PAIN
     Dosage: 1 PATCH;Q72H;TDER
     Route: 062
     Dates: start: 20120507
  4. FENTANYL-50 [Suspect]
     Indication: DEPRESSION
     Dosage: 1 PATCH;Q72H;TDER
     Route: 062
     Dates: start: 20120507
  5. LIDOCAINE [Concomitant]
  6. IMITREX [Concomitant]
  7. ATIVAN [Concomitant]
  8. RITALIN [Concomitant]
  9. DEPAKOTE [Concomitant]

REACTIONS (7)
  - WRONG TECHNIQUE IN DRUG USAGE PROCESS [None]
  - PRODUCT ADHESION ISSUE [None]
  - MUSCLE TIGHTNESS [None]
  - FEELING ABNORMAL [None]
  - MYALGIA [None]
  - PRODUCT QUALITY ISSUE [None]
  - DRUG INEFFECTIVE [None]
